FAERS Safety Report 11879120 (Version 2)
Quarter: 2016Q1

REPORT INFORMATION
  Report Type: Spontaneous
  Country: GB (occurrence: GB)
  Receive Date: 20151230
  Receipt Date: 20160106
  Transmission Date: 20160526
  Serious: Yes (Hospitalization, Other)
  Sender: FDA-Public Use
  Company Number: GB-AMGEN-GBRSP2015138876

PATIENT
  Age: 58 Year
  Sex: Male

DRUGS (2)
  1. ARANESP [Suspect]
     Active Substance: DARBEPOETIN ALFA
     Indication: PRODUCT USED FOR UNKNOWN INDICATION
     Dosage: 30 MUG, Q3WK
     Route: 065
  2. IRON [Concomitant]
     Active Substance: IRON

REACTIONS (3)
  - Viral infection [Unknown]
  - Diabetic ketoacidosis [Not Recovered/Not Resolved]
  - Incorrect product storage [Unknown]
